FAERS Safety Report 9975817 (Version 1)
Quarter: 2014Q1

REPORT INFORMATION
  Report Type: Spontaneous
  Country: IN (occurrence: IN)
  Receive Date: 20140306
  Receipt Date: 20140306
  Transmission Date: 20141002
  Serious: Yes (Hospitalization)
  Sender: FDA-Public Use
  Company Number: IN-ALLERGAN-1403760US

PATIENT
  Age: 34 Year
  Sex: Male

DRUGS (2)
  1. DAPSONE UNK [Suspect]
     Indication: SKIN LESION
  2. BENZATHINE PENICILLIN [Concomitant]
     Indication: PROPHYLAXIS
     Dosage: SINCE 3 YEARS

REACTIONS (1)
  - Drug reaction with eosinophilia and systemic symptoms [Recovering/Resolving]
